FAERS Safety Report 6283197-0 (Version None)
Quarter: 2009Q3

REPORT INFORMATION
  Report Type: 
  Country: None (occurrence: None)
  Receive Date: 20090724
  Receipt Date: 20090720
  Transmission Date: 20100115
  Serious: Yes (Other)
  Sender: FDA-Public Use
  Company Number: D0062264A

PATIENT
  Sex: Female

DRUGS (3)
  1. FORMIGRAN [Suspect]
     Indication: MIGRAINE
     Route: 048
     Dates: end: 20071001
  2. ASPIRIN [Suspect]
     Route: 048
  3. HORMONAL PLASTERS [Suspect]
     Route: 062

REACTIONS (1)
  - THROMBOSIS [None]
